FAERS Safety Report 16978047 (Version 1)
Quarter: 2019Q4

REPORT INFORMATION
  Report Type: Spontaneous
  Country: FR (occurrence: FR)
  Receive Date: 20191031
  Receipt Date: 20191031
  Transmission Date: 20200122
  Serious: Yes (Congenital Anomaly)
  Sender: FDA-Public Use
  Company Number: FR-TEVA-2019-FR-1129225

PATIENT
  Sex: Male

DRUGS (2)
  1. CARBAMAZEPINE. [Suspect]
     Active Substance: CARBAMAZEPINE
     Indication: EPILEPSY
     Dosage: UNKNOWN
     Route: 064
     Dates: start: 199012
  2. DEPAKINE 500 MG, COMPRIM? GASTRO-R?SISTANT [Suspect]
     Active Substance: VALPROATE SODIUM
     Indication: EPILEPSY
     Dosage: 4 DOSAGE FORMS
     Route: 064
     Dates: start: 199012, end: 19910914

REACTIONS (7)
  - Spine malformation [Not Recovered/Not Resolved]
  - Visual impairment [Unknown]
  - Cardiac murmur [Unknown]
  - Mental disorder [Unknown]
  - Behaviour disorder [Unknown]
  - Chromosomal deletion [Not Recovered/Not Resolved]
  - Foot deformity [Not Recovered/Not Resolved]

NARRATIVE: CASE EVENT DATE: 1991
